FAERS Safety Report 9447863 (Version 1)
Quarter: 2013Q3

REPORT INFORMATION
  Report Type: Spontaneous
  Country: AU (occurrence: None)
  Receive Date: 20130805
  Receipt Date: 20130805
  Transmission Date: 20140515
  Serious: Yes (Death)
  Sender: FDA-Public Use
  Company Number: AU-ALKEM-000117

PATIENT
  Sex: 0

DRUGS (2)
  1. MYCOPHENOLATE MOFETIL (MYCOPHENOLATE MOFETIL) [Suspect]
     Indication: PYODERMA GANGRENOSUM
  2. PREDNISOLONE [Concomitant]

REACTIONS (2)
  - Large intestine perforation [None]
  - Off label use [None]
